FAERS Safety Report 14207609 (Version 1)
Quarter: 2017Q4

REPORT INFORMATION
  Report Type: Spontaneous
  Country: US (occurrence: US)
  Receive Date: 20171121
  Receipt Date: 20171121
  Transmission Date: 20180321
  Serious: No
  Sender: FDA-Public Use
  Company Number: US-JNJFOC-20171026383

PATIENT
  Age: 96 Year
  Sex: Male

DRUGS (12)
  1. PRESERVISION AREDS [Concomitant]
     Active Substance: MINERALS\VITAMINS
  2. IMBRUVICA [Suspect]
     Active Substance: IBRUTINIB
     Indication: CHRONIC LYMPHOCYTIC LEUKAEMIA
     Route: 048
     Dates: start: 20160922
  3. ASPIRIN. [Concomitant]
     Active Substance: ASPIRIN
  4. SIMVASTATIN. [Concomitant]
     Active Substance: SIMVASTATIN
  5. VERAPAMIL [Concomitant]
     Active Substance: VERAPAMIL HYDROCHLORIDE
  6. MULTIVITAMINS [Concomitant]
     Active Substance: VITAMINS
  7. OMEPRAZOLE. [Concomitant]
     Active Substance: OMEPRAZOLE
  8. RANITIDINE. [Concomitant]
     Active Substance: RANITIDINE
  9. ENALAPRIL [Concomitant]
     Active Substance: ENALAPRIL
  10. TERAZOSIN [Concomitant]
     Active Substance: TERAZOSIN\TERAZOSIN HYDROCHLORIDE
  11. FERROUS SULFATE. [Concomitant]
     Active Substance: FERROUS SULFATE
  12. TYLENOL [Concomitant]
     Active Substance: ACETAMINOPHEN

REACTIONS (3)
  - Abdominal discomfort [Unknown]
  - Viral infection [Unknown]
  - Asthenia [Unknown]

NARRATIVE: CASE EVENT DATE: 20171011
